FAERS Safety Report 6902340-0 (Version None)
Quarter: 2010Q3

REPORT INFORMATION
  Report Type: 
  Country: None (occurrence: None)
  Receive Date: 20100803
  Receipt Date: 20080515
  Transmission Date: 20110219
  Serious: No
  Sender: FDA-Public Use
  Company Number: US-PFIZER INC-2008042571

PATIENT
  Sex: Male
  Weight: 75.8 kg

DRUGS (3)
  1. LYRICA [Suspect]
  2. ELAVIL [Suspect]
     Indication: FIBROMYALGIA
     Dates: start: 20080222
  3. OXYMORPHONE [Suspect]
     Dates: start: 20080222

REACTIONS (1)
  - OEDEMA PERIPHERAL [None]
